FAERS Safety Report 5147861-9 (Version None)
Quarter: 2006Q4

REPORT INFORMATION
  Report Type: 
  Country: None (occurrence: None)
  Receive Date: 20061110
  Receipt Date: 20060417
  Transmission Date: 20070319
  Serious: Yes (Life-Threatening, Hospitalization)
  Sender: FDA-Public Use
  Company Number: US-AMGEN-US176656

PATIENT
  Sex: Female
  Weight: 59.6 kg

DRUGS (4)
  1. ETANERCEPT [Suspect]
     Indication: JUVENILE ARTHRITIS
     Route: 058
     Dates: start: 20040812, end: 20060330
  2. METHOTREXATE [Concomitant]
     Route: 048
  3. NAPROSYN [Concomitant]
  4. FOLIC ACID [Concomitant]

REACTIONS (13)
  - BLOOD FIBRINOGEN INCREASED [None]
  - BLOOD TRIGLYCERIDES INCREASED [None]
  - CARDIOMEGALY [None]
  - EPSTEIN-BARR VIRUS INFECTION [None]
  - FIBRIN D DIMER INCREASED [None]
  - HISTIOCYTOSIS HAEMATOPHAGIC [None]
  - MULTI-ORGAN FAILURE [None]
  - PERICARDIAL EFFUSION [None]
  - PLATELET COUNT DECREASED [None]
  - PULMONARY OEDEMA [None]
  - RESPIRATORY DISTRESS [None]
  - SERUM FERRITIN INCREASED [None]
  - WHITE BLOOD CELL COUNT DECREASED [None]
